FAERS Safety Report 4715637-X (Version None)
Quarter: 2005Q3

REPORT INFORMATION
  Report Type: 
  Country: None (occurrence: None)
  Receive Date: 20050713
  Receipt Date: 20050603
  Transmission Date: 20060218
  Serious: Yes (Other)
  Sender: FDA-Public Use
  Company Number: 2005085140

PATIENT
  Age: 75 Year
  Sex: Female

DRUGS (4)
  1. HALCION [Suspect]
     Indication: PAIN
     Dosage: 0.25 MG (0.125 MG, 2 IN 1 D), ORAL
     Route: 048
  2. FERROMIA (FERROUS CITRATE) [Concomitant]
  3. PURSENNID (SENNA LEAF) [Concomitant]
  4. VOLTAREN [Concomitant]

REACTIONS (7)
  - CONDITION AGGRAVATED [None]
  - DIZZINESS [None]
  - DRUG INEFFECTIVE [None]
  - FOOD INTERACTION [None]
  - METASTASES TO BLADDER [None]
  - OVARIAN CANCER METASTATIC [None]
  - PAIN [None]
